FAERS Safety Report 4840886-X (Version None)
Quarter: 2005Q4

REPORT INFORMATION
  Report Type: 
  Country: None (occurrence: None)
  Receive Date: 20051130
  Receipt Date: 20050525
  Transmission Date: 20060501
  Serious: Yes (Death, Hospitalization)
  Sender: FDA-Public Use
  Company Number: KR-SANOFI-SYNTHELABO-A01200508039

PATIENT
  Sex: Female

DRUGS (15)
  1. PLAVIX [Suspect]
     Indication: ANTIPLATELET THERAPY
     Route: 048
     Dates: start: 20040909, end: 20040929
  2. ASTRIX [Concomitant]
     Indication: PLATELET AGGREGATION INHIBITION
     Route: 048
     Dates: start: 20040909, end: 20041129
  3. DILATREND [Concomitant]
     Indication: ANGINA PECTORIS
     Route: 048
     Dates: start: 20040909, end: 20041129
  4. DILATREND [Concomitant]
     Indication: HYPERTENSION
     Route: 048
     Dates: start: 20040909, end: 20041129
  5. LESCOL XL [Concomitant]
     Indication: HYPERLIPIDAEMIA
     Route: 048
     Dates: start: 20040909, end: 20041129
  6. LEVOPRIDE [Concomitant]
     Indication: DYSPEPSIA
     Route: 048
     Dates: start: 20040909, end: 20041129
  7. GLUCOPHAGE [Concomitant]
     Indication: DIABETES MELLITUS
     Route: 048
     Dates: start: 20040909, end: 20041129
  8. GLUCOBAY [Concomitant]
     Indication: DIABETES MELLITUS
     Route: 048
     Dates: start: 20040909, end: 20041129
  9. SIGMART [Concomitant]
     Indication: ANGINA PECTORIS
     Route: 048
     Dates: start: 20040909, end: 20041129
  10. MAGO [Concomitant]
     Indication: ULCER
     Route: 048
     Dates: start: 20040909, end: 20041129
  11. MAGO [Concomitant]
     Indication: LAXATIVE SUPPORTIVE CARE
     Route: 048
     Dates: start: 20040909, end: 20041129
  12. ISOKET [Concomitant]
     Indication: ANGINA PECTORIS
     Route: 048
     Dates: start: 20040909, end: 20041129
  13. HERBEN [Concomitant]
     Indication: ANGINA PECTORIS
     Route: 048
     Dates: start: 20040909, end: 20041129
  14. HERBEN [Concomitant]
     Indication: HYPERTENSION
     Route: 048
     Dates: start: 20040909, end: 20041129
  15. AMARYL [Concomitant]
     Indication: DIABETES MELLITUS
     Route: 048
     Dates: end: 20041129

REACTIONS (3)
  - COUGH [None]
  - PRODUCTIVE COUGH [None]
  - PYREXIA [None]
